FAERS Safety Report 6372127-9 (Version None)
Quarter: 2009Q3

REPORT INFORMATION
  Report Type: 
  Country: None (occurrence: None)
  Receive Date: 20090917
  Receipt Date: 20090907
  Transmission Date: 20100115
  Serious: Yes (Hospitalization)
  Sender: FDA-Public Use
  Company Number: B0593089A

PATIENT
  Age: 67 Year
  Sex: Female

DRUGS (6)
  1. NARATRIPTAN HYDROCHLORIDE (FORMULATION UNKNOWN) (GENRIC) (NARATRIPTAN [Suspect]
     Indication: MIGRAINE
     Dosage: 2.5 MG / AS REQUIRED / ORAL
     Route: 048
  2. LISINOPRIL [Concomitant]
  3. PARACETAMOL [Concomitant]
  4. MAGNESIUM SALT [Concomitant]
  5. CHOLESTYRAMINE [Concomitant]
  6. AMLODIPINE [Concomitant]

REACTIONS (6)
  - ACUTE CORONARY SYNDROME [None]
  - ARTERIOSPASM CORONARY [None]
  - BLOOD CREATINE PHOSPHOKINASE INCREASED [None]
  - CHEST PAIN [None]
  - ELECTROCARDIOGRAM T WAVE INVERSION [None]
  - TROPONIN T INCREASED [None]
